FAERS Safety Report 12236192 (Version 2)
Quarter: 2016Q2

REPORT INFORMATION
  Report Type: Spontaneous
  Country: CA (occurrence: CA)
  Receive Date: 20160404
  Receipt Date: 20160418
  Transmission Date: 20160815
  Serious: Yes (Life-Threatening, Other)
  Sender: FDA-Public Use
  Company Number: PHHY2016CA035509

PATIENT
  Age: 85 Year
  Sex: Female

DRUGS (6)
  1. CANDESARTAN SANDOZ [Suspect]
     Active Substance: CANDESARTAN
     Indication: HYPERTENSION
     Dosage: 16/12.5 MG, UNK
     Route: 048
  2. CELEBREX [Concomitant]
     Active Substance: CELECOXIB
     Indication: PRODUCT USED FOR UNKNOWN INDICATION
     Route: 065
  3. PREDNISONE. [Concomitant]
     Active Substance: PREDNISONE
     Indication: PRODUCT USED FOR UNKNOWN INDICATION
     Dosage: 5 DF, QD
     Route: 065
  4. REACTINE                                /CAN/ [Concomitant]
     Indication: PRODUCT USED FOR UNKNOWN INDICATION
     Dosage: UNK, BID
     Route: 065
  5. TRAVOPROST [Concomitant]
     Active Substance: TRAVOPROST
     Indication: PRODUCT USED FOR UNKNOWN INDICATION
     Route: 065
  6. TOBREX [Concomitant]
     Active Substance: TOBRAMYCIN
     Indication: PRODUCT USED FOR UNKNOWN INDICATION
     Route: 065

REACTIONS (11)
  - Skin fissures [Unknown]
  - Urticaria [Unknown]
  - Swelling [Unknown]
  - Suicidal ideation [Unknown]
  - Fall [Unknown]
  - Blood pressure increased [Unknown]
  - Pruritus generalised [Unknown]
  - Dry skin [Unknown]
  - Erythema [Unknown]
  - Feeling abnormal [Unknown]
  - Depressed mood [Unknown]

NARRATIVE: CASE EVENT DATE: 20151217
